FAERS Safety Report 4282698-4 (Version None)
Quarter: 2004Q1

REPORT INFORMATION
  Report Type: 
  Country: None (occurrence: None)
  Receive Date: 20040130
  Receipt Date: 20030311
  Transmission Date: 20041129
  Serious: Yes (Hospitalization)
  Sender: FDA-Public Use
  Company Number: US-BRISTOL-MYERS SQUIBB COMPANY-12209243

PATIENT
  Sex: Female

DRUGS (1)
  1. SERZONE [Suspect]
     Dosage: TOOK 40 TABLETS OF 200MG
     Route: 048
     Dates: start: 20030308

REACTIONS (1)
  - OVERDOSE [None]
